FAERS Safety Report 9741152 (Version 1)
Quarter: 2013Q4

REPORT INFORMATION
  Report Type: Not Available
  Country: US (occurrence: US)
  Receive Date: 20131209
  Receipt Date: 20131209
  Transmission Date: 20140711
  Serious: No
  Sender: FDA-Public Use
  Company Number: US-FOUGERA-2013FO000247

PATIENT
  Age: 74 Year
  Sex: Female
  Weight: 55.39 kg

DRUGS (1)
  1. SULFACETAMIDE SODIUM [Suspect]
     Indication: ROSACEA
     Route: 061

REACTIONS (1)
  - Drug ineffective [Not Recovered/Not Resolved]
